FAERS Safety Report 5699848-5 (Version None)
Quarter: 2008Q2

REPORT INFORMATION
  Report Type: 
  Country: None (occurrence: None)
  Receive Date: 20080410
  Receipt Date: 20080404
  Transmission Date: 20081010
  Serious: Yes (Hospitalization, Other)
  Sender: FDA-Public Use
  Company Number: US-BOEHRINGER INGELHEIM GMBH, GERMANY-2008-BP-02065BP

PATIENT
  Sex: Male

DRUGS (2)
  1. SPIRIVA [Suspect]
     Indication: CHRONIC OBSTRUCTIVE PULMONARY DISEASE
     Route: 055
  2. ANTI SEIZURE MEDICATION [Concomitant]
     Indication: CONVULSION

REACTIONS (5)
  - ASTHENIA [None]
  - CONVULSION [None]
  - DYSPNOEA [None]
  - LUNG INFECTION [None]
  - PNEUMONIA [None]
